FAERS Safety Report 23367711 (Version 2)
Quarter: 2024Q3

REPORT INFORMATION
  Report Type: Spontaneous
  Country: US (occurrence: US)
  Receive Date: 20240104
  Receipt Date: 20240902
  Transmission Date: 20241017
  Serious: Yes (Other)
  Sender: ASTELLAS
  Company Number: US-ASTELLAS-2023US036086

PATIENT
  Age: 61 Year
  Sex: Male

DRUGS (1)
  1. PADCEV [Suspect]
     Active Substance: ENFORTUMAB VEDOTIN-EJFV
     Indication: Bladder cancer
     Dosage: 1.25 MG/KG, (98MG) CYCLIC (ON DAY 1, 8 AND 15 OF 28 DAY CYCLE)
     Route: 042
     Dates: start: 20221207, end: 20231004

REACTIONS (3)
  - Neuropathy peripheral [Recovering/Resolving]
  - Lacrimation increased [Unknown]
  - Fall [Unknown]

NARRATIVE: CASE EVENT DATE: 20231001
